FAERS Safety Report 16678675 (Version 3)
Quarter: 2021Q4

REPORT INFORMATION
  Report Type: Report from Study
  Country: DE (occurrence: DE)
  Receive Date: 20190807
  Receipt Date: 20211117
  Transmission Date: 20220303
  Serious: Yes (Other)
  Sender: FDA-Public Use
  Company Number: DE-GILEAD-2019-0422157

PATIENT
  Age: 58 Year
  Sex: Male
  Weight: 71 kg

DRUGS (1)
  1. SOFOSBUVIR\VELPATASVIR [Suspect]
     Active Substance: SOFOSBUVIR\VELPATASVIR
     Indication: Chronic hepatitis C
     Dosage: 1 DOSAGE FORM, QD, 500 MG/DIE
     Route: 048
     Dates: start: 20190430, end: 20190723

REACTIONS (5)
  - Pancytopenia [Unknown]
  - Melaena [Unknown]
  - Abdominal discomfort [Recovering/Resolving]
  - Arrhythmia [Unknown]
  - Fatigue [Recovering/Resolving]

NARRATIVE: CASE EVENT DATE: 20190430
